FAERS Safety Report 4367317-0 (Version None)
Quarter: 2004Q2

REPORT INFORMATION
  Report Type: 
  Country: None (occurrence: None)
  Receive Date: 20040527
  Receipt Date: 20040524
  Transmission Date: 20050107
  Serious: Yes (Disabling)
  Sender: FDA-Public Use
  Company Number: 04-05-0746

PATIENT
  Age: 86 Year
  Sex: Male

DRUGS (2)
  1. TRAMADOL HCL [Suspect]
     Dosage: 50-100 QDS ORAL
     Route: 048
  2. RAMIPRIL [Suspect]
     Dosage: 2-5MG ORAL
     Route: 048

REACTIONS (2)
  - PAIN [None]
  - PEMPHIGOID [None]
